FAERS Safety Report 8327017-9 (Version None)
Quarter: 2012Q2

REPORT INFORMATION
  Report Type: 
  Country: None (occurrence: None)
  Receive Date: 20120501
  Receipt Date: 20120416
  Transmission Date: 20120825
  Serious: Yes (Hospitalization)
  Sender: FDA-Public Use
  Company Number: ES-ROCHE-1060690

PATIENT
  Sex: Male
  Weight: 72.5 kg

DRUGS (5)
  1. XELODA [Suspect]
     Indication: COLORECTAL CANCER
     Dosage: LAST DOSE PRIOR TO EVENT:28/MAR/2012
     Route: 048
     Dates: start: 20120315
  2. CELECOXIB [Concomitant]
     Indication: OSTEOARTHRITIS
     Route: 048
     Dates: end: 20120222
  3. OXALIPLATIN [Suspect]
     Indication: COLORECTAL CANCER
     Dosage: LAST DOSE PRIOR TO THE EVENT:15/MAR/2012
     Route: 042
     Dates: start: 20120222
  4. AVASTIN [Suspect]
     Indication: COLORECTAL CANCER
     Dosage: LAST DOSE PRIOR TO EVENT: 15/MAR/2012
     Route: 042
     Dates: start: 20120223
  5. GINKGO [Concomitant]
     Route: 048

REACTIONS (2)
  - GASTROINTESTINAL DISORDER [None]
  - RENAL FAILURE ACUTE [None]
